FAERS Safety Report 8488913-5 (Version None)
Quarter: 2012Q3

REPORT INFORMATION
  Report Type: 
  Country: None (occurrence: None)
  Receive Date: 20120705
  Receipt Date: 20120627
  Transmission Date: 20120928
  Serious: Yes (Hospitalization, Other)
  Sender: FDA-Public Use
  Company Number: US-ALEXION PHARMACEUTICALS INC.-A201201131

PATIENT
  Sex: Male

DRUGS (12)
  1. LISINOPRIL [Concomitant]
     Dosage: 10 MG, BID
     Route: 048
  2. MULTI-VITAMIN [Concomitant]
     Dosage: UNK, QD
     Route: 048
  3. MULTIVITAMINS PLUS IRON [Concomitant]
     Dosage: UNK, QD
     Route: 048
  4. ASPIRIN [Concomitant]
     Dosage: 81 MG, QD
     Route: 048
  5. AMBIEN [Concomitant]
     Dosage: UNK, QD
     Route: 048
  6. PREDNISONE [Concomitant]
     Dosage: 60 MG, QD
     Route: 048
  7. LANOXIN [Concomitant]
     Dosage: 0.125 MG, QD
     Route: 048
  8. SOLIRIS [Suspect]
     Indication: PAROXYSMAL NOCTURNAL HAEMOGLOBINURIA
     Dosage: 900 MG, Q2W
     Route: 042
     Dates: start: 20120425
  9. SOLIRIS [Suspect]
     Dosage: 600 MG, QW X 4
     Route: 042
     Dates: start: 20120329
  10. VITAMIN B-12 [Concomitant]
     Dosage: UNK
     Route: 030
  11. COUMADIN [Concomitant]
     Dosage: 5 MG, QD
  12. METOPROLOL SUCCINATE [Concomitant]
     Dosage: 12.5 MG, QD
     Route: 048

REACTIONS (3)
  - ASTHENIA [None]
  - FATIGUE [None]
  - DEHYDRATION [None]
